FAERS Safety Report 6921214-2 (Version None)
Quarter: 2010Q3

REPORT INFORMATION
  Report Type: 
  Country: None (occurrence: None)
  Receive Date: 20100812
  Receipt Date: 20100810
  Transmission Date: 20110219
  Serious: Yes (Life-Threatening, Hospitalization)
  Sender: FDA-Public Use
  Company Number: A0866470A

PATIENT
  Sex: Female
  Weight: 25 kg

DRUGS (1)
  1. ADVAIR DISKUS 100/50 [Suspect]
     Indication: PRODUCT USED FOR UNKNOWN INDICATION
     Dosage: 125MCG TWICE PER DAY
     Route: 065
     Dates: end: 20100622

REACTIONS (5)
  - CONVULSION [None]
  - DEPRESSED LEVEL OF CONSCIOUSNESS [None]
  - HYPOGLYCAEMIA [None]
  - HYPONATRAEMIA [None]
  - HYPOTHALAMO-PITUITARY DISORDER [None]
